FAERS Safety Report 7802741-2 (Version None)
Quarter: 2011Q4

REPORT INFORMATION
  Report Type: 
  Country: None (occurrence: None)
  Receive Date: 20111005
  Receipt Date: 20110927
  Transmission Date: 20120403
  Serious: Yes (Other)
  Sender: FDA-Public Use
  Company Number: 2011SP045883

PATIENT
  Age: 28 Year
  Sex: Female
  Weight: 58 kg

DRUGS (3)
  1. DESOGESTREL AND ETHINYL ESTRADIOL [Suspect]
     Indication: CONTRACEPTION
     Dosage: QD, PO
     Route: 048
     Dates: start: 20080101
  2. DESOGESTREL AND ETHINYL ESTRADIOL [Suspect]
     Indication: MENSTRUAL DISORDER
     Dosage: QD, PO
     Route: 048
     Dates: start: 20080101
  3. DESOGESTREL AND ETHINYL ESTRADIOL [Suspect]
     Indication: DYSMENORRHOEA
     Dosage: QD, PO
     Route: 048
     Dates: start: 20080101

REACTIONS (2)
  - METRORRHAGIA [None]
  - NEPHROLITHIASIS [None]
